FAERS Safety Report 5170490-8 (Version None)
Quarter: 2006Q4

REPORT INFORMATION
  Report Type: 
  Country: None (occurrence: None)
  Receive Date: 20061204
  Receipt Date: 20061127
  Transmission Date: 20070319
  Serious: Yes (Other)
  Sender: FDA-Public Use
  Company Number: 2006141515

PATIENT
  Sex: Female

DRUGS (1)
  1. XALATAN [Suspect]
     Indication: GLAUCOMA
     Dosage: 1 DROP (1 DROP,1 IN 1 D), OPHTHALMIC
     Route: 047
     Dates: start: 20021114

REACTIONS (1)
  - INTRAOCULAR PRESSURE INCREASED [None]
